FAERS Safety Report 7620323-2 (Version None)
Quarter: 2011Q3

REPORT INFORMATION
  Report Type: 
  Country: None (occurrence: None)
  Receive Date: 20110719
  Receipt Date: 20100512
  Transmission Date: 20111222
  Serious: Yes (Death, Hospitalization, Other)
  Sender: FDA-Public Use
  Company Number: US-AMGEN-QUU390671

PATIENT
  Age: 97 Year
  Sex: Female

DRUGS (7)
  1. NPLATE [Suspect]
     Indication: IDIOPATHIC THROMBOCYTOPENIC PURPURA
     Dosage: 1 A?G/KG, ONE TIME DOSE
     Route: 058
     Dates: start: 20090620, end: 20090620
  2. ESOMEPRAZOLE MAGNESIUM [Concomitant]
     Dosage: 40 MG, BID
     Route: 048
  3. PREDNISONE [Concomitant]
     Dosage: 30 MG, BID
  4. SITAGLIPTIN [Concomitant]
     Dosage: 25 MG, QD
     Route: 048
  5. GLIMEPIRIDE [Concomitant]
     Dosage: 2 MG, QD
     Route: 048
  6. LEVOTHYROXINE SODIUM [Concomitant]
     Dosage: 75 A?G, QD
     Route: 048
  7. ROSUVASTATIN CALCIUM [Concomitant]
     Dosage: 25 MG, QD
     Route: 048

REACTIONS (8)
  - ACUTE RESPIRATORY DISTRESS SYNDROME [None]
  - ATRIAL FIBRILLATION [None]
  - PLEURAL EFFUSION [None]
  - PALPITATIONS [None]
  - MENTAL STATUS CHANGES [None]
  - THROMBOCYTOPENIA [None]
  - PULMONARY OEDEMA [None]
  - DIABETES MELLITUS [None]
